FAERS Safety Report 21861572 (Version 1)
Quarter: 2023Q1

REPORT INFORMATION
  Report Type: Spontaneous
  Country: US (occurrence: US)
  Receive Date: 20230113
  Receipt Date: 20230113
  Transmission Date: 20230417
  Serious: No
  Sender: FDA-Public Use
  Company Number: US-IBSA PHARMA INC.-2022IBS000274

PATIENT

DRUGS (2)
  1. TIROSINT [Suspect]
     Active Substance: LEVOTHYROXINE SODIUM
     Indication: Thyroid therapy
     Dosage: 75 MICROGRAM, QD
     Route: 048
     Dates: end: 20220824
  2. TIROSINT [Suspect]
     Active Substance: LEVOTHYROXINE SODIUM
     Dosage: 75 MICROGRAM, QD
     Route: 048
     Dates: start: 20220906, end: 20220910

REACTIONS (9)
  - Dizziness [Unknown]
  - Blood pressure decreased [Unknown]
  - Asthenia [Unknown]
  - Diarrhoea [Unknown]
  - Palpitations [Unknown]
  - Insomnia [Unknown]
  - Hypertension [Unknown]
  - Fatigue [Unknown]
  - Rash erythematous [Not Recovered/Not Resolved]

NARRATIVE: CASE EVENT DATE: 20220801
